FAERS Safety Report 5969285-4 (Version None)
Quarter: 2008Q4

REPORT INFORMATION
  Report Type: 
  Country: None (occurrence: None)
  Receive Date: 20081126
  Receipt Date: 20081125
  Transmission Date: 20090506
  Serious: Yes (Disabling, Other)
  Sender: FDA-Public Use
  Company Number: US-B.I. PHARMACEUTICALS,INC./RIDGEFIELD-2008-BP-16228BP

PATIENT
  Sex: Male

DRUGS (4)
  1. SPIRIVA [Suspect]
     Indication: CHRONIC OBSTRUCTIVE PULMONARY DISEASE
     Dosage: 18MCG
     Route: 055
  2. LUMIGAN [Concomitant]
     Indication: EYE DISORDER
  3. UNKNOWN EYE DROPS [Concomitant]
     Indication: EYE DISORDER
  4. 14 OTHER PILLS [Concomitant]

REACTIONS (3)
  - BLINDNESS UNILATERAL [None]
  - IMPAIRED DRIVING ABILITY [None]
  - NEOPLASM MALIGNANT [None]
